FAERS Safety Report 9934503 (Version 1)
Quarter: 2014Q1

REPORT INFORMATION
  Report Type: Spontaneous
  Country: US (occurrence: US)
  Receive Date: 20140228
  Receipt Date: 20140228
  Transmission Date: 20141002
  Serious: Yes (Life-Threatening, Other)
  Sender: FDA-Public Use
  Company Number: US-ABBVIE-14P-163-1205993-00

PATIENT
  Age: 43 Year
  Sex: Male

DRUGS (2)
  1. ANDROGEL [Suspect]
     Indication: BLOOD TESTOSTERONE DECREASED
     Dosage: USED AS DIRECTED
     Dates: start: 201107, end: 201109
  2. AXIRON [Suspect]
     Indication: BLOOD TESTOSTERONE DECREASED
     Dosage: USED THROUGHOUT THE MONTH OF JULY 2011
     Dates: start: 201107

REACTIONS (5)
  - Cerebrovascular accident [Unknown]
  - Injury [Unknown]
  - Emotional distress [Unknown]
  - Pain [Unknown]
  - Loss of employment [Unknown]
